FAERS Safety Report 10064359 (Version 1)
Quarter: 2014Q2

REPORT INFORMATION
  Report Type: Spontaneous
  Country: US (occurrence: None)
  Receive Date: 20140407
  Receipt Date: 20140407
  Transmission Date: 20141212
  Serious: Yes (Other)
  Sender: FDA-Public Use
  Company Number: None

PATIENT
  Age: 2 Year
  Sex: Female
  Weight: 14.52 kg

DRUGS (1)
  1. MONTELUKAST SOD [Suspect]
     Indication: MULTIPLE ALLERGIES
     Dosage: TAKEN BY MOUTH
     Dates: start: 20140331, end: 20140403

REACTIONS (5)
  - Insomnia [None]
  - Anxiety [None]
  - Delusion [None]
  - Frequent bowel movements [None]
  - Nightmare [None]
